FAERS Safety Report 21401684 (Version 1)
Quarter: 2022Q3

REPORT INFORMATION
  Report Type: Spontaneous
  Country: US (occurrence: None)
  Receive Date: 20220930
  Receipt Date: 20220930
  Transmission Date: 20221027
  Serious: Yes (Other)
  Sender: FDA-Public Use
  Company Number: None

PATIENT
  Age: 17 Year

DRUGS (1)
  1. HYDROGEN PEROXIDE [Suspect]
     Active Substance: HYDROGEN PEROXIDE
     Dosage: OTHER ROUTE : INTRAORAL;?
     Route: 050

REACTIONS (3)
  - Toothache [None]
  - Dental caries [None]
  - Tooth injury [None]
